FAERS Safety Report 5972445-X (Version None)
Quarter: 2008Q4

REPORT INFORMATION
  Report Type: 
  Country: None (occurrence: None)
  Receive Date: 20081125
  Receipt Date: 20081104
  Transmission Date: 20090506
  Serious: Yes (Hospitalization)
  Sender: FDA-Public Use
  Company Number: 20085808

PATIENT
  Age: 14 Year
  Sex: Male
  Weight: 53.6 kg

DRUGS (1)
  1. BACLOFEN [Suspect]
     Indication: CEREBRAL HAEMORRHAGE
     Dosage: 25 - 40 MCG, DAILY, INTRATHECAL
     Route: 037

REACTIONS (3)
  - INTRACRANIAL HYPOTENSION [None]
  - LUMBAR PUNCTURE ABNORMAL [None]
  - NEUROLOGICAL SYMPTOM [None]
